FAERS Safety Report 17857103 (Version 2)
Quarter: 2020Q3

REPORT INFORMATION
  Report Type: Spontaneous
  Country: US (occurrence: US)
  Receive Date: 20200603
  Receipt Date: 20200915
  Transmission Date: 20201103
  Serious: Yes (Death, Hospitalization, Other)
  Sender: FDA-Public Use
  Company Number: US-GILEAD-2020-0468777

PATIENT
  Age: 60 Year
  Sex: Male
  Weight: 102.99 kg

DRUGS (56)
  1. ALBUTEROL [SALBUTAMOL] [Concomitant]
     Active Substance: ALBUTEROL
     Indication: BRONCHOSPASM
     Dosage: 6 PUFF Q6 HR
     Route: 055
     Dates: start: 20200512, end: 20200520
  2. GABAPENTIN. [Concomitant]
     Active Substance: GABAPENTIN
     Indication: PAIN
     Dosage: 600 MG, Q8H
     Route: 048
     Dates: start: 20200511, end: 20200514
  3. INSULIN GLARGINE [Concomitant]
     Active Substance: INSULIN GLARGINE
     Indication: HYPERGLYCAEMIA
     Dosage: 12 UNITS Q12 HR
     Route: 058
     Dates: start: 20200513, end: 20200517
  4. FAMOTIDINE. [Concomitant]
     Active Substance: FAMOTIDINE
     Dosage: 20 MG, PO OR IV
     Dates: start: 20200429, end: 20200518
  5. MAGNESIUM SULFATE. [Concomitant]
     Active Substance: MAGNESIUM SULFATE
     Indication: HYPOMAGNESAEMIA
     Dosage: 1 G
     Route: 042
     Dates: start: 20200514, end: 20200514
  6. MIDAZOLAM. [Concomitant]
     Active Substance: MIDAZOLAM
  7. ROCURONIUM [Concomitant]
     Active Substance: ROCURONIUM BROMIDE
     Indication: PARALYSIS
     Dosage: 0?12 MCG/KG/MIN, TITRATED TO TOF 2/4
     Dates: start: 20200513, end: 20200515
  8. HYDROMORPHONE [Concomitant]
     Active Substance: HYDROMORPHONE
     Indication: SEDATION
     Dosage: 0?5 MG/HR
     Route: 042
     Dates: start: 20200505, end: 20200512
  9. FENTANYL. [Concomitant]
     Active Substance: FENTANYL
  10. CEFTRIAXONE. [Concomitant]
     Active Substance: CEFTRIAXONE
  11. REMDESIVIR. [Suspect]
     Active Substance: REMDESIVIR
     Indication: COVID-19
     Dosage: 200 MG, ONCE
     Route: 042
     Dates: start: 20200508, end: 20200508
  12. INSULIN REGULAR HM [Concomitant]
     Active Substance: INSULIN NOS
     Indication: HYPERGLYCAEMIA
     Dosage: 5 UNITS 4X PER DAY
     Route: 058
     Dates: start: 20200514, end: 20200517
  13. LACTULOSE. [Concomitant]
     Active Substance: LACTULOSE
     Dosage: 20 G 4X PER DAY
     Route: 048
     Dates: start: 20200516, end: 20200517
  14. DEXMEDETOMIDINE. [Concomitant]
     Active Substance: DEXMEDETOMIDINE
     Indication: SEDATION
     Dosage: 1.5?2 MCG/KG/HR
     Route: 042
     Dates: start: 20200506, end: 20200519
  15. KETAMINE [Concomitant]
     Active Substance: KETAMINE
     Indication: SEDATION
     Dosage: 45?50 MCG/KG/MIN
     Route: 042
     Dates: start: 20200429, end: 20200520
  16. LEVOPHED [Concomitant]
     Active Substance: NOREPINEPHRINE BITARTRATE
  17. ALBUMIN [Concomitant]
     Active Substance: ALBUMIN HUMAN
  18. FUROSEMIDE. [Concomitant]
     Active Substance: FUROSEMIDE
     Indication: POLYURIA
     Dosage: 20?60 MG PRN
     Route: 042
     Dates: start: 20200430, end: 20200513
  19. MIDODRINE [Concomitant]
     Active Substance: MIDODRINE
     Indication: HYPOTENSION
     Dosage: 15?20 MG 3?4 X PER DAY
     Route: 048
     Dates: start: 20200510, end: 20200520
  20. VANCOMYCIN [Concomitant]
     Active Substance: VANCOMYCIN
     Indication: BACTERIAL INFECTION
     Dosage: DOSED BY LEVEL, RECEIVED 2 DOSES
     Route: 042
     Dates: start: 20200515, end: 20200517
  21. NOREPINEPHRINE. [Concomitant]
     Active Substance: NOREPINEPHRINE
     Indication: SHOCK
  22. VASOPRESSIN. [Concomitant]
     Active Substance: VASOPRESSIN
     Indication: HYPOTENSION
     Dosage: 0.04 UNITS/MIN
     Route: 042
     Dates: start: 20200513, end: 20200514
  23. ACETAMINOPHEN. [Concomitant]
     Active Substance: ACETAMINOPHEN
     Indication: PYREXIA
  24. SEROQUEL [Concomitant]
     Active Substance: QUETIAPINE FUMARATE
  25. AZITHROMYCIN ANHYDROUS. [Concomitant]
     Active Substance: AZITHROMYCIN ANHYDROUS
  26. METOLAZONE. [Concomitant]
     Active Substance: METOLAZONE
     Indication: POLYURIA
     Dosage: 10 MG, BID
     Route: 048
     Dates: start: 20200512, end: 20200513
  27. PIPERACILLIN/TAZOBACTAM [Concomitant]
     Active Substance: PIPERACILLIN SODIUM\TAZOBACTAM SODIUM
     Indication: PNEUMONIA
     Dosage: 4.5 G, Q6H
     Route: 042
     Dates: start: 20200504, end: 20200512
  28. QUETIAPINE. [Concomitant]
     Active Substance: QUETIAPINE
     Indication: SEDATION
     Dosage: 50 MG Q8?12 HR
     Route: 048
     Dates: start: 20200508, end: 20200514
  29. VASOPRESSIN. [Concomitant]
     Active Substance: VASOPRESSIN
     Indication: SHOCK
  30. ACETAMINOPHEN. [Concomitant]
     Active Substance: ACETAMINOPHEN
     Indication: PAIN
     Dosage: 650 MG, Q6H PRN
     Route: 048
     Dates: start: 20200513, end: 20200519
  31. ALTEPLASE. [Concomitant]
     Active Substance: ALTEPLASE
     Dosage: 5 MG BOLUS, THEN 2 MG/HR
     Route: 040
     Dates: start: 20200514, end: 20200515
  32. REMDESIVIR. [Suspect]
     Active Substance: REMDESIVIR
     Dosage: 100 MG, QD
     Route: 042
     Dates: start: 20200509, end: 20200512
  33. CAFFEINE CITRATE. [Concomitant]
     Active Substance: CAFFEINE CITRATE
  34. ENOXAPARIN [Concomitant]
     Active Substance: ENOXAPARIN
  35. INSULIN GLARGINE [Concomitant]
     Active Substance: INSULIN GLARGINE
     Indication: DIABETES MELLITUS
  36. INSULIN LISPRO [Concomitant]
     Active Substance: INSULIN LISPRO
     Indication: DIABETES MELLITUS
  37. METHYLPREDNISOLONE. [Concomitant]
     Active Substance: METHYLPREDNISOLONE
  38. OXYCODONE [Concomitant]
     Active Substance: OXYCODONE
     Indication: PAIN
     Dosage: 10 MG, Q6H
     Route: 048
     Dates: start: 20200506, end: 20200520
  39. QUETIAPINE. [Concomitant]
     Active Substance: QUETIAPINE
     Indication: AGITATION
  40. ZOSYN [Concomitant]
     Active Substance: PIPERACILLIN SODIUM\TAZOBACTAM SODIUM
  41. VECURONIUM [Concomitant]
     Active Substance: VECURONIUM BROMIDE
  42. BUMETANIDE. [Concomitant]
     Active Substance: BUMETANIDE
     Indication: POLYURIA
     Dosage: 0.5 MG/HR
     Route: 042
     Dates: start: 20200513, end: 20200518
  43. CHLOROTHIAZIDE. [Concomitant]
     Active Substance: CHLOROTHIAZIDE
  44. INSULIN LISPRO [Concomitant]
     Active Substance: INSULIN LISPRO
     Indication: HYPERGLYCAEMIA
     Dosage: 1?10 UNITS PRN
     Route: 058
     Dates: start: 20200501, end: 20200519
  45. POTASSIUM CHLORIDE. [Concomitant]
     Active Substance: POTASSIUM CHLORIDE
     Indication: HYPOKALAEMIA
     Dosage: 10?20 MEQ PRN
     Route: 042
     Dates: start: 20200515, end: 20200519
  46. HYDROMORPHONE [Concomitant]
     Active Substance: HYDROMORPHONE
     Indication: ANALGESIC THERAPY
  47. NOREPINEPHRINE. [Concomitant]
     Active Substance: NOREPINEPHRINE
     Indication: HYPOTENSION
     Dosage: 0?20 MCG/MIN, TITRATED TO MAP }65
     Route: 042
     Dates: start: 20200429, end: 20200520
  48. CISATRACURIUM. [Concomitant]
     Active Substance: CISATRACURIUM
     Indication: PARALYSIS
     Dosage: 0.5?3 MCG/KG/MIN
     Route: 042
     Dates: start: 20200515, end: 20200519
  49. MEROPENEM. [Concomitant]
     Active Substance: MEROPENEM
     Indication: BACTERIAL INFECTION
     Dosage: 500 MG, Q8H
     Route: 042
     Dates: start: 20200516, end: 20200517
  50. NIMBEX [NIMESULIDE] [Concomitant]
     Active Substance: NIMESULIDE
  51. DILAUDID HP [Concomitant]
     Active Substance: HYDROMORPHONE HYDROCHLORIDE
  52. EPOPROSTENOL. [Concomitant]
     Active Substance: EPOPROSTENOL
     Indication: ACUTE RESPIRATORY DISTRESS SYNDROME
     Dosage: 0.2 MG/HR
     Route: 055
     Dates: start: 20200504, end: 20200520
  53. HEPARIN [Concomitant]
     Active Substance: HEPARIN SODIUM
     Dosage: TITRATED TO ANTI?XA OR APTT GOAL
     Route: 042
     Dates: start: 20200505, end: 20200519
  54. PROPOFOL. [Concomitant]
     Active Substance: PROPOFOL
  55. CALCIUM GLUCONATE. [Concomitant]
     Active Substance: CALCIUM GLUCONATE
     Indication: RENAL REPLACEMENT THERAPY
     Dosage: 50 ML/HR
     Route: 042
     Dates: start: 20200514, end: 20200519
  56. PRECEDEX [Concomitant]
     Active Substance: DEXMEDETOMIDINE HYDROCHLORIDE

REACTIONS (7)
  - Hypotension [Not Recovered/Not Resolved]
  - Hypomagnesaemia [Not Recovered/Not Resolved]
  - Acute kidney injury [Not Recovered/Not Resolved]
  - Acidosis [Not Recovered/Not Resolved]
  - Hypokalaemia [Not Recovered/Not Resolved]
  - Paralysis [Not Recovered/Not Resolved]
  - COVID-19 [Fatal]

NARRATIVE: CASE EVENT DATE: 20200513
